FAERS Safety Report 23548712 (Version 1)
Quarter: 2024Q1

REPORT INFORMATION
  Report Type: Spontaneous
  Country: US (occurrence: None)
  Receive Date: 20240219
  Receipt Date: 20240219
  Transmission Date: 20240410
  Serious: No
  Sender: FDA-Public Use
  Company Number: None

PATIENT
  Age: 77 Year
  Sex: Male
  Weight: 67.5 kg

DRUGS (4)
  1. PAXLOVID [Suspect]
     Active Substance: NIRMATRELVIR\RITONAVIR
     Indication: Immunodeficiency
     Dosage: FREQUENCY : TWICE A DAY;?
     Route: 048
     Dates: start: 20240207, end: 20240212
  2. VITAMINS [Concomitant]
     Active Substance: VITAMINS
  3. OTC Prostate supplement [Concomitant]
  4. HAWTHORNE [Concomitant]

REACTIONS (3)
  - COVID-19 [None]
  - COVID-19 [None]
  - Product communication issue [None]

NARRATIVE: CASE EVENT DATE: 20240218
